FAERS Safety Report 8204981-X (Version None)
Quarter: 2012Q1

REPORT INFORMATION
  Report Type: 
  Country: None (occurrence: None)
  Receive Date: 20120313
  Receipt Date: 20120301
  Transmission Date: 20120608
  Serious: No
  Sender: FDA-Public Use
  Company Number: US-JNJFOC-20120301856

PATIENT

DRUGS (2)
  1. INVEGA [Suspect]
     Indication: PRODUCT USED FOR UNKNOWN INDICATION
     Route: 048
  2. FANAPT [Concomitant]
     Route: 048

REACTIONS (2)
  - TREATMENT NONCOMPLIANCE [None]
  - THERAPEUTIC RESPONSE DECREASED [None]
